FAERS Safety Report 18448092 (Version 4)
Quarter: 2022Q1

REPORT INFORMATION
  Report Type: Spontaneous
  Country: PT (occurrence: PT)
  Receive Date: 20201031
  Receipt Date: 20220324
  Transmission Date: 20220423
  Serious: Yes (Death, Hospitalization, Other)
  Sender: FDA-Public Use
  Company Number: PT-AUROBINDO-AUR-APL-2020-054668

PATIENT
  Age: 68 Year
  Sex: Male

DRUGS (15)
  1. CEFTRIAXONE [Suspect]
     Active Substance: CEFTRIAXONE
     Indication: Spontaneous bacterial peritonitis
     Dosage: UNK
     Route: 065
  2. CEFTRIAXONE [Suspect]
     Active Substance: CEFTRIAXONE
     Indication: Pyrexia
  3. CEFTRIAXONE [Suspect]
     Active Substance: CEFTRIAXONE
     Indication: Fungal endocarditis
  4. VANCOMYCIN [Suspect]
     Active Substance: VANCOMYCIN
     Indication: Fungal endocarditis
     Dosage: UNK
     Route: 065
  5. VANCOMYCIN [Suspect]
     Active Substance: VANCOMYCIN
     Indication: Endocarditis candida
  6. PIPERACILLIN AND TAZOBACTAM [Suspect]
     Active Substance: PIPERACILLIN SODIUM\TAZOBACTAM SODIUM
     Indication: Spontaneous bacterial peritonitis
     Dosage: UNK
     Route: 065
  7. PIPERACILLIN AND TAZOBACTAM [Suspect]
     Active Substance: PIPERACILLIN SODIUM\TAZOBACTAM SODIUM
     Indication: Peritonitis bacterial
  8. PIPERACILLIN AND TAZOBACTAM [Suspect]
     Active Substance: PIPERACILLIN SODIUM\TAZOBACTAM SODIUM
     Indication: Pyrexia
  9. PIPERACILLIN AND TAZOBACTAM [Suspect]
     Active Substance: PIPERACILLIN SODIUM\TAZOBACTAM SODIUM
     Indication: Fungal endocarditis
  10. GENTAMICIN [Suspect]
     Active Substance: GENTAMICIN
     Indication: Peritonitis bacterial
     Dosage: UNK
     Route: 065
  11. GENTAMICIN [Suspect]
     Active Substance: GENTAMICIN
     Indication: Fungal endocarditis
  12. GENTAMICIN [Suspect]
     Active Substance: GENTAMICIN
     Indication: Pyrexia
  13. GENTAMICIN [Suspect]
     Active Substance: GENTAMICIN
     Indication: Endocarditis candida
  14. ANIDULAFUNGIN [Concomitant]
     Active Substance: ANIDULAFUNGIN
     Indication: Fungal endocarditis
     Dosage: UNK
     Route: 065
  15. ANIDULAFUNGIN [Concomitant]
     Active Substance: ANIDULAFUNGIN
     Indication: Candida infection

REACTIONS (2)
  - Acute kidney injury [Fatal]
  - Drug ineffective [Unknown]
